FAERS Safety Report 6133622-0 (Version None)
Quarter: 2009Q1

REPORT INFORMATION
  Report Type: 
  Country: None (occurrence: None)
  Receive Date: 20090324
  Receipt Date: 20090213
  Transmission Date: 20090719
  Serious: Yes (Other)
  Sender: FDA-Public Use
  Company Number: 2009EU001090

PATIENT
  Age: 64 Year

DRUGS (5)
  1. TACROLIMUS [Suspect]
     Indication: STEM CELL TRANSPLANT
  2. EVEROLIMUS [Suspect]
     Indication: STEM CELL TRANSPLANT
     Dosage: 1.5 MG, ORAL
     Route: 048
  3. BUSULFAN (BUSULFAN) [Concomitant]
  4. FLUDARABINE PHOSPHATE [Concomitant]
  5. DEFIBROTIDE (DEFIBROTIDE) [Concomitant]

REACTIONS (2)
  - PORTAL VEIN THROMBOSIS [None]
  - THROMBOTIC MICROANGIOPATHY [None]
